FAERS Safety Report 17499286 (Version 1)
Quarter: 2020Q1

REPORT INFORMATION
  Report Type: Spontaneous
  Country: US (occurrence: US)
  Receive Date: 20200304
  Receipt Date: 20200304
  Transmission Date: 20200409
  Serious: Yes (Other)
  Sender: FDA-Public Use
  Company Number: US-B.BRAUN MEDICAL INC.-2081281

PATIENT
  Age: 47 Year
  Sex: Female

DRUGS (1)
  1. FREAMINE HBC [Suspect]
     Active Substance: ALANINE\ARGININE\CYSTEINE HYDROCHLORIDE\GLYCINE\HISTIDINE\ISOLEUCINE\LEUCINE\LYSINE ACETATE\METHIONINE\PHENYLALANINE\PROLINE\SERINE\THREONINE\TRYPTOPHAN\VALINE

REACTIONS (3)
  - Flushing [None]
  - Nausea [None]
  - Erythema [None]
